FAERS Safety Report 12508303 (Version 1)
Quarter: 2016Q2

REPORT INFORMATION
  Report Type: Spontaneous
  Country: US (occurrence: None)
  Receive Date: 20160628
  Receipt Date: 20160628
  Transmission Date: 20160815
  Serious: No
  Sender: FDA-Public Use
  Company Number: None

PATIENT
  Age: 33 Year
  Sex: Male

DRUGS (1)
  1. ENBREL [Suspect]
     Active Substance: ETANERCEPT
     Indication: PRODUCT USED FOR UNKNOWN INDICATION
     Dosage: 50MG INJECT SUBCUTA SQ
     Route: 058
     Dates: start: 20160101

REACTIONS (2)
  - Injection site mass [None]
  - Injection site discolouration [None]

NARRATIVE: CASE EVENT DATE: 20160627
